FAERS Safety Report 10279354 (Version 2)
Quarter: 2014Q4

REPORT INFORMATION
  Report Type: Spontaneous
  Country: FR (occurrence: FR)
  Receive Date: 20140707
  Receipt Date: 20141114
  Transmission Date: 20150528
  Serious: Yes (Hospitalization, Other)
  Sender: FDA-Public Use
  Company Number: FR-MERCK-1406FRA013928

PATIENT
  Age: 1 Month
  Sex: Male
  Weight: 4.8 kg

DRUGS (4)
  1. IMIPENEM AND CILASTATIN [Suspect]
     Active Substance: CILASTATIN SODIUM\IMIPENEM
     Indication: PYREXIA
     Dosage: 60 MG/KG, QD
     Route: 042
     Dates: start: 20140612, end: 20140613
  2. AMIKLIN [Concomitant]
     Active Substance: AMIKACIN SULFATE
     Indication: MENINGITIS
     Dosage: UNK
     Route: 042
     Dates: start: 20140612
  3. IMIPENEM AND CILASTATIN [Suspect]
     Active Substance: CILASTATIN SODIUM\IMIPENEM
     Indication: MENINGITIS
  4. VANCOMYCIN MYLAN [Concomitant]
     Active Substance: VANCOMYCIN
     Indication: MENINGITIS
     Dosage: UNK
     Route: 042
     Dates: start: 20140612

REACTIONS (4)
  - Opisthotonus [Recovered/Resolved]
  - Tonic convulsion [Recovered/Resolved]
  - Pyramidal tract syndrome [Recovered/Resolved]
  - Somnolence [Recovered/Resolved]

NARRATIVE: CASE EVENT DATE: 20140613
